FAERS Safety Report 7293750-3 (Version None)
Quarter: 2011Q1

REPORT INFORMATION
  Report Type: 
  Country: None (occurrence: None)
  Receive Date: 20110215
  Receipt Date: 20110204
  Transmission Date: 20110831
  Serious: Yes (Other)
  Sender: FDA-Public Use
  Company Number: GB-JNJFOC-20110202210

PATIENT
  Age: 59 Year
  Sex: Male

DRUGS (2)
  1. REMICADE [Suspect]
     Indication: PRODUCT USED FOR UNKNOWN INDICATION
     Route: 042
  2. REMICADE [Suspect]
     Route: 042

REACTIONS (7)
  - INFUSION RELATED REACTION [None]
  - FEELING HOT [None]
  - BODY TEMPERATURE DECREASED [None]
  - FLUSHING [None]
  - HYPOTENSION [None]
  - DIZZINESS [None]
  - TACHYCARDIA [None]
